FAERS Safety Report 4424145-5 (Version None)
Quarter: 2004Q3

REPORT INFORMATION
  Report Type: 
  Country: None (occurrence: None)
  Receive Date: 20040809
  Receipt Date: 20420726
  Transmission Date: 20050211
  Serious: Yes (Hospitalization)
  Sender: FDA-Public Use
  Company Number: 2004GB01828

PATIENT
  Age: 26 Year
  Sex: Female

DRUGS (12)
  1. ACCOLATE [Suspect]
     Dosage: 20 MG BID PO
     Route: 048
     Dates: start: 20010116
  2. PREDNISOLONE [Concomitant]
  3. FLIXOTIDE [Concomitant]
  4. FLUTICASONE PROPIONATE [Concomitant]
  5. CALCHICHEW D3 [Concomitant]
  6. LEVOCETIRIZINE [Concomitant]
  7. DOMPERIDONE [Concomitant]
  8. ONDANSETRON [Concomitant]
  9. GAVISCON [Concomitant]
  10. ACTONEL [Concomitant]
  11. ALBUTEROL SULFATE [Concomitant]
  12. SALMETEROL [Concomitant]

REACTIONS (2)
  - GASTRIC DISORDER [None]
  - PANCREATITIS [None]
